FAERS Safety Report 23588760 (Version 1)
Quarter: 2024Q1

REPORT INFORMATION
  Report Type: Spontaneous
  Country: US (occurrence: US)
  Receive Date: 20240303
  Receipt Date: 20240303
  Transmission Date: 20240409
  Serious: Yes (Hospitalization, Other)
  Sender: FDA-Public Use
  Company Number: US-MLMSERVICE-20240213-4832941-1

PATIENT
  Age: 47 Year
  Sex: Female

DRUGS (2)
  1. LAMOTRIGINE [Suspect]
     Active Substance: LAMOTRIGINE
     Indication: Major depression
     Dosage: FOR 10 YEARS
     Route: 065
  2. QUETIAPINE [Suspect]
     Active Substance: QUETIAPINE
     Indication: Major depression
     Dosage: FOR 10 YEARS
     Route: 065

REACTIONS (9)
  - Sedation [Unknown]
  - Affective disorder [Unknown]
  - Condition aggravated [Unknown]
  - Anxiety [Unknown]
  - Irritability [Unknown]
  - Psychomotor skills impaired [Unknown]
  - Insomnia [Unknown]
  - Decreased appetite [Unknown]
  - Psychotic symptom [Unknown]
